FAERS Safety Report 21342452 (Version 2)
Quarter: 2022Q3

REPORT INFORMATION
  Report Type: Spontaneous
  Country: NL (occurrence: None)
  Receive Date: 20220916
  Receipt Date: 20220927
  Transmission Date: 20221027
  Serious: Yes (Hospitalization)
  Sender: FDA-Public Use
  Company Number: 2022A313329

PATIENT
  Age: 20547 Day
  Sex: Male

DRUGS (1)
  1. FASENRA [Suspect]
     Active Substance: BENRALIZUMAB
     Indication: Asthma
     Route: 058
     Dates: start: 20200501

REACTIONS (8)
  - Productive cough [Unknown]
  - Dyspnoea [Unknown]
  - Pneumonia [Unknown]
  - C-reactive protein increased [Unknown]
  - Chest pain [Unknown]
  - Pyrexia [Unknown]
  - Sputum discoloured [Unknown]
  - Off label use [Unknown]

NARRATIVE: CASE EVENT DATE: 20220907
